FAERS Safety Report 4430538-2 (Version None)
Quarter: 2004Q3

REPORT INFORMATION
  Report Type: 
  Country: None (occurrence: None)
  Receive Date: 20040818
  Receipt Date: 20040810
  Transmission Date: 20050211
  Serious: Yes (Other)
  Sender: FDA-Public Use
  Company Number: 2004228020GB

PATIENT
  Age: 49 Year
  Sex: Female

DRUGS (4)
  1. SULFASALAZINE [Suspect]
     Indication: RHEUMATOID ARTHRITIS
     Dosage: 1500 MG, BID, ORAL
     Route: 048
     Dates: start: 19980101, end: 20040705
  2. NAPROXEN [Concomitant]
  3. ATENOLOL [Concomitant]
  4. LANSOPRAZOLE [Concomitant]

REACTIONS (1)
  - HYPOGAMMAGLOBULINAEMIA [None]
